FAERS Safety Report 7948278-1 (Version None)
Quarter: 2011Q4

REPORT INFORMATION
  Report Type: 
  Country: None (occurrence: None)
  Receive Date: 20111125
  Receipt Date: 20111103
  Transmission Date: 20120403
  Serious: Yes (Other)
  Sender: FDA-Public Use
  Company Number: JPI-P-018024

PATIENT
  Age: 59 Year
  Sex: Female

DRUGS (3)
  1. ATENOLOL [Concomitant]
  2. XYREM [Suspect]
     Indication: NARCOLEPSY
     Dosage: (UNKNOWN), ORAL, 9 GM (4.5 GM, 2 IN 1 D), ORAL
     Route: 048
     Dates: start: 20090512
  3. LISINOPRIL [Concomitant]

REACTIONS (1)
  - ROTATOR CUFF SYNDROME [None]
